FAERS Safety Report 4334236-5 (Version None)
Quarter: 2004Q2

REPORT INFORMATION
  Report Type: 
  Country: None (occurrence: None)
  Receive Date: 20040405
  Receipt Date: 20040318
  Transmission Date: 20050107
  Serious: No
  Sender: FDA-Public Use
  Company Number: 118-04-03-001

PATIENT
  Sex: Male

DRUGS (1)
  1. FAMOTIDINE 10 MG TABLETS, DR. REDDY'S LABORATORIES [Suspect]
     Dosage: ORAL
     Route: 048
     Dates: start: 20040201

REACTIONS (7)
  - ARTHRALGIA [None]
  - BLOOD PRESSURE INCREASED [None]
  - DIARRHOEA [None]
  - HEADACHE [None]
  - HYPOAESTHESIA [None]
  - MEDICATION ERROR [None]
  - VOMITING [None]
